FAERS Safety Report 4577964-9 (Version None)
Quarter: 2005Q1

REPORT INFORMATION
  Report Type: 
  Country: None (occurrence: None)
  Receive Date: 20050209
  Receipt Date: 20050120
  Transmission Date: 20050727
  Serious: Yes (Hospitalization)
  Sender: FDA-Public Use
  Company Number: FR_041105330

PATIENT
  Age: 67 Year
  Sex: Female

DRUGS (3)
  1. EVISTA [Suspect]
     Indication: OSTEOPOROSIS
     Dosage: 60 MG/1 DAY
     Dates: start: 20031001, end: 20041028
  2. AMLODIPINE BESYLATE [Concomitant]
  3. METEOSPASMYL [Concomitant]

REACTIONS (2)
  - EOSINOPHIL COUNT INCREASED [None]
  - HEPATOCELLULAR DAMAGE [None]
